FAERS Safety Report 17004913 (Version 2)
Quarter: 2019Q4

REPORT INFORMATION
  Report Type: Report from Study
  Country: US (occurrence: US)
  Receive Date: 20191107
  Receipt Date: 20191218
  Transmission Date: 20200122
  Serious: Yes (Other)
  Sender: FDA-Public Use
  Company Number: US-UCBSA-2019046000

PATIENT
  Age: 55 Year
  Sex: Male

DRUGS (2)
  1. OXYCODONE [Concomitant]
     Active Substance: OXYCODONE
     Indication: PAIN
  2. CERTOLIZUMAB PEGOL [Suspect]
     Active Substance: CERTOLIZUMAB PEGOL
     Indication: CROHN^S DISEASE
     Dosage: 200 MILLIGRAM, EV 3 WEEKS
     Dates: start: 2006

REACTIONS (6)
  - Haematochezia [Recovered/Resolved]
  - Drug ineffective [Unknown]
  - Pain in extremity [Unknown]
  - Blood pressure increased [Not Recovered/Not Resolved]
  - Musculoskeletal pain [Unknown]
  - Off label use [Unknown]

NARRATIVE: CASE EVENT DATE: 2006
